FAERS Safety Report 25405618 (Version 1)
Quarter: 2025Q2

REPORT INFORMATION
  Report Type: Spontaneous
  Country: US (occurrence: US)
  Receive Date: 20250606
  Receipt Date: 20250606
  Transmission Date: 20250717
  Serious: No
  Sender: AMGEN
  Company Number: US-AMGEN-USASP2025109201

PATIENT
  Age: 3 Decade
  Sex: Female

DRUGS (1)
  1. OTEZLA [Suspect]
     Active Substance: APREMILAST
     Indication: Psoriasis
     Route: 065
     Dates: start: 202412, end: 2025

REACTIONS (2)
  - Drug ineffective [Unknown]
  - Psoriasis [Unknown]

NARRATIVE: CASE EVENT DATE: 20250101
